FAERS Safety Report 7471880-0 (Version None)
Quarter: 2011Q2

REPORT INFORMATION
  Report Type: 
  Country: None (occurrence: None)
  Receive Date: 20110511
  Receipt Date: 20100629
  Transmission Date: 20111010
  Serious: No
  Sender: FDA-Public Use
  Company Number: A0867639A

PATIENT
  Age: 66 Year
  Sex: Female

DRUGS (4)
  1. XELODA [Suspect]
     Route: 048
     Dates: start: 20100526
  2. LIPITOR [Concomitant]
  3. ZOMETA [Concomitant]
  4. TYKERB [Suspect]
     Indication: BREAST CANCER
     Dosage: 5TAB PER DAY
     Route: 048
     Dates: start: 20100526

REACTIONS (7)
  - DYSPEPSIA [None]
  - PAIN IN EXTREMITY [None]
  - ERYTHEMA [None]
  - NAUSEA [None]
  - DIARRHOEA [None]
  - DRY SKIN [None]
  - FATIGUE [None]
